FAERS Safety Report 4782517-3 (Version None)
Quarter: 2005Q3

REPORT INFORMATION
  Report Type: 
  Country: None (occurrence: None)
  Receive Date: 20050929
  Receipt Date: 20050207
  Transmission Date: 20060218
  Serious: No
  Sender: FDA-Public Use
  Company Number: 400413

PATIENT
  Age: 70 Year
  Sex: Female

DRUGS (4)
  1. COREG [Suspect]
     Indication: HYPERTENSION
     Dosage: 3.125MG TWICE PER DAY
     Route: 048
     Dates: start: 20050204
  2. DIAVAN [Concomitant]
  3. ZOCOR [Concomitant]
  4. ACTOS [Concomitant]

REACTIONS (2)
  - BLOOD PRESSURE DECREASED [None]
  - FATIGUE [None]
